FAERS Safety Report 5374187-0 (Version None)
Quarter: 2007Q2

REPORT INFORMATION
  Report Type: 
  Country: None (occurrence: None)
  Receive Date: 20070627
  Receipt Date: 20061120
  Transmission Date: 20071010
  Serious: Yes (Death)
  Sender: FDA-Public Use
  Company Number: 472275

PATIENT
  Age: 56 Year
  Sex: Male
  Weight: 72.6 kg

DRUGS (2)
  1. XELODA [Suspect]
     Indication: PANCREATIC CARCINOMA
     Dosage: 2500 MG DAILY ORAL
     Route: 048
     Dates: start: 20060926, end: 20061009
  2. GEMZAR [Concomitant]

REACTIONS (1)
  - PANCREATIC CARCINOMA [None]
